FAERS Safety Report 25089504 (Version 1)
Quarter: 2025Q1

REPORT INFORMATION
  Report Type: Spontaneous
  Country: US (occurrence: None)
  Receive Date: 20250317
  Receipt Date: 20250317
  Transmission Date: 20250408
  Serious: Yes (Hospitalization)
  Sender: FDA-CTU
  Company Number: None

PATIENT
  Age: 72 Year
  Sex: Male
  Weight: 102 kg

DRUGS (2)
  1. LUMATEPERONE [Suspect]
     Active Substance: LUMATEPERONE
     Indication: Affective disorder
     Dosage: 21.00 MG DAILY ORAL ?
     Route: 048
  2. VERAPAMIL [Suspect]
     Active Substance: VERAPAMIL HYDROCHLORIDE

REACTIONS (2)
  - Orthostatic hypotension [None]
  - Syncope [None]

NARRATIVE: CASE EVENT DATE: 20250117
